FAERS Safety Report 7074671-8 (Version None)
Quarter: 2010Q4

REPORT INFORMATION
  Report Type: 
  Country: None (occurrence: None)
  Receive Date: 20101029
  Receipt Date: 20101027
  Transmission Date: 20110411
  Serious: Yes (Hospitalization)
  Sender: FDA-Public Use
  Company Number: B0681050A

PATIENT
  Sex: Female

DRUGS (3)
  1. WELLVONE [Suspect]
     Indication: PROPHYLAXIS
     Route: 065
     Dates: start: 20100702, end: 20100713
  2. LOVENOX [Suspect]
     Indication: PRODUCT USED FOR UNKNOWN INDICATION
     Route: 065
  3. SPECIAFOLDINE [Concomitant]
     Dosage: 5MG UNKNOWN
     Route: 048

REACTIONS (4)
  - ERYTHEMA [None]
  - PRURIGO [None]
  - SKIN HYPERPIGMENTATION [None]
  - TOXIC SKIN ERUPTION [None]
